FAERS Safety Report 10637342 (Version 1)
Quarter: 2014Q4

REPORT INFORMATION
  Report Type: Spontaneous
  Country: US (occurrence: US)
  Receive Date: 20141208
  Receipt Date: 20141208
  Transmission Date: 20150529
  Serious: Yes (Other)
  Sender: FDA-Public Use
  Company Number: US-AMGEN-USASP2014093551

PATIENT

DRUGS (1)
  1. PROLIA [Suspect]
     Active Substance: DENOSUMAB
     Indication: PRODUCT USED FOR UNKNOWN INDICATION
     Route: 065

REACTIONS (17)
  - Joint swelling [Unknown]
  - Nausea [Unknown]
  - Blood cholesterol increased [Unknown]
  - Chronic obstructive pulmonary disease [Unknown]
  - Back pain [Unknown]
  - Gait disturbance [Unknown]
  - Flushing [Unknown]
  - Emphysema [Unknown]
  - Gingival swelling [Unknown]
  - Blood pressure increased [Unknown]
  - Peripheral swelling [Unknown]
  - Vomiting [Unknown]
  - Vitamin D decreased [Unknown]
  - Pruritus [Unknown]
  - Urinary tract infection [Unknown]
  - Cystitis [Unknown]
  - Swelling face [Unknown]
